FAERS Safety Report 9688139 (Version 9)
Quarter: 2014Q2

REPORT INFORMATION
  Report Type: Spontaneous
  Country: JP (occurrence: JP)
  Receive Date: 20131114
  Receipt Date: 20140626
  Transmission Date: 20141212
  Serious: Yes (Hospitalization)
  Sender: FDA-Public Use
  Company Number: JP-JNJFOC-20131105797

PATIENT
  Age: 77 Year
  Sex: Female
  Weight: 44 kg

DRUGS (6)
  1. SIMPONI [Suspect]
     Indication: RHEUMATOID ARTHRITIS
     Route: 058
     Dates: start: 20130201, end: 20130906
  2. RHEUMATREX [Suspect]
     Indication: RHEUMATOID ARTHRITIS
     Route: 048
     Dates: end: 20130927
  3. FOLIAMIN [Suspect]
     Indication: RHEUMATOID ARTHRITIS
     Route: 048
     Dates: end: 20130927
  4. CELECOX [Suspect]
     Indication: RHEUMATOID ARTHRITIS
     Route: 048
     Dates: end: 20130927
  5. MUCOSTA [Suspect]
     Indication: RHEUMATOID ARTHRITIS
     Route: 048
     Dates: end: 20130927
  6. EDIROL [Concomitant]
     Indication: OSTEOPOROSIS
     Route: 048

REACTIONS (6)
  - Peritoneal tuberculosis [Recovering/Resolving]
  - Haemoglobin decreased [Recovering/Resolving]
  - Tuberculous pleurisy [Recovering/Resolving]
  - Gastrointestinal disorder [Unknown]
  - Drug-induced liver injury [Unknown]
  - Herpes zoster [Unknown]
